FAERS Safety Report 18932064 (Version 1)
Quarter: 2021Q1

REPORT INFORMATION
  Report Type: Spontaneous
  Country: US (occurrence: US)
  Receive Date: 20210223
  Receipt Date: 20210223
  Transmission Date: 20210420
  Serious: Yes (Other)
  Sender: FDA-Public Use
  Company Number: US-BAXTER-2021BAX003174

PATIENT
  Age: 26 Year
  Sex: Female

DRUGS (5)
  1. HYDRALAZINE [Suspect]
     Active Substance: HYDRALAZINE HYDROCHLORIDE
     Indication: MALIGNANT HYPERTENSION
     Route: 065
  2. NIFEDIPINE. [Suspect]
     Active Substance: NIFEDIPINE
     Indication: HYPERTENSION
     Route: 065
  3. LABETALOL HYDROCHLORIDE INJECTION, USP [Suspect]
     Active Substance: LABETALOL HYDROCHLORIDE
     Indication: MALIGNANT HYPERTENSION
     Dosage: MAXIMAL DOSES
     Route: 042
  4. NIFEDIPINE. [Suspect]
     Active Substance: NIFEDIPINE
     Indication: MALIGNANT HYPERTENSION
     Route: 048
  5. METHYLDOPA. [Suspect]
     Active Substance: METHYLDOPA
     Indication: HYPERTENSION
     Route: 065

REACTIONS (2)
  - Exposure during pregnancy [Unknown]
  - Foetal growth restriction [Unknown]
